FAERS Safety Report 13005030 (Version 1)
Quarter: 2016Q4

REPORT INFORMATION
  Report Type: Spontaneous
  Country: US (occurrence: US)
  Receive Date: 20161207
  Receipt Date: 20161207
  Transmission Date: 20170207
  Serious: No
  Sender: FDA-Public Use
  Company Number: US-PFIZER INC-2016557311

PATIENT
  Age: 52 Year
  Sex: Female

DRUGS (1)
  1. IBRANCE [Suspect]
     Active Substance: PALBOCICLIB
     Indication: BREAST CANCER METASTATIC
     Dosage: UNK
     Dates: start: 20160615

REACTIONS (7)
  - Weight decreased [Unknown]
  - White blood cell count decreased [Unknown]
  - Speech disorder [Unknown]
  - Fatigue [Unknown]
  - Oesophagitis [Unknown]
  - Night sweats [Unknown]
  - Lymphoedema [Unknown]
